FAERS Safety Report 4917018-2 (Version None)
Quarter: 2006Q1

REPORT INFORMATION
  Report Type: 
  Country: None (occurrence: None)
  Receive Date: 20060221
  Receipt Date: 20060215
  Transmission Date: 20060701
  Serious: Yes (Hospitalization)
  Sender: FDA-Public Use
  Company Number: 2006SE00944

PATIENT
  Age: 28307 Day
  Sex: Female
  Weight: 51 kg

DRUGS (13)
  1. BLOPRESS [Suspect]
     Indication: HYPERTENSION
     Route: 048
     Dates: start: 20051220, end: 20051230
  2. NORVASC [Concomitant]
     Indication: HYPERTENSION
     Route: 048
  3. FERROMIA [Concomitant]
     Route: 048
  4. ASPIRIN [Concomitant]
     Route: 048
  5. PANALDINE [Concomitant]
     Route: 048
  6. ARICEPT [Concomitant]
     Route: 048
  7. ASPARA K [Concomitant]
     Route: 048
  8. TAKEPRON [Concomitant]
     Route: 048
  9. CEROCRAL [Concomitant]
     Route: 048
  10. SYAKUYAKUKANZOTO [Concomitant]
     Route: 048
  11. CRAVIT [Concomitant]
     Route: 048
     Dates: start: 20051224, end: 20051227
  12. TOCLASE [Concomitant]
     Indication: COUGH
     Route: 048
     Dates: start: 20051224, end: 20051227
  13. BAKUMONDOUTO [Concomitant]
     Indication: COUGH
     Route: 048
     Dates: start: 20051219, end: 20051225

REACTIONS (3)
  - BLOOD PRESSURE SYSTOLIC INCREASED [None]
  - HYPOKALAEMIA [None]
  - RHABDOMYOLYSIS [None]
